FAERS Safety Report 12223726 (Version 8)
Quarter: 2017Q2

REPORT INFORMATION
  Report Type: Report from Study
  Country: US (occurrence: US)
  Receive Date: 20160330
  Receipt Date: 20170407
  Transmission Date: 20170830
  Serious: Yes (Hospitalization)
  Sender: FDA-Public Use
  Company Number: US-ACTELION-A-NJ2016-133557

PATIENT
  Age: 52 Year
  Sex: Female
  Weight: 52.15 kg

DRUGS (4)
  1. XARELTO [Concomitant]
     Active Substance: RIVAROXABAN
  2. OPSUMIT [Suspect]
     Active Substance: MACITENTAN
     Indication: PULMONARY HYPERTENSION
     Dosage: 10 MG, QD
     Route: 048
     Dates: start: 20160219
  3. REMODULIN [Suspect]
     Active Substance: TREPROSTINIL
     Indication: PRODUCT USED FOR UNKNOWN INDICATION
     Route: 065
  4. ADCIRCA [Concomitant]
     Active Substance: TADALAFIL

REACTIONS (13)
  - Vomiting [Unknown]
  - Heart rate increased [Unknown]
  - Arthralgia [Unknown]
  - Device related infection [Unknown]
  - Headache [Unknown]
  - Palpitations [Unknown]
  - Dizziness [Unknown]
  - Cardiac disorder [Unknown]
  - Nausea [Unknown]
  - Cough [Unknown]
  - Pyrexia [Unknown]
  - Dyspnoea exertional [Unknown]
  - Sepsis [Unknown]

NARRATIVE: CASE EVENT DATE: 20160502
